FAERS Safety Report 6669586-0 (Version None)
Quarter: 2010Q2

REPORT INFORMATION
  Report Type: 
  Country: None (occurrence: None)
  Receive Date: 20100406
  Receipt Date: 20100325
  Transmission Date: 20101027
  Serious: Yes (Other)
  Sender: FDA-Public Use
  Company Number: FR-PFIZER INC-2010038631

PATIENT
  Age: 87 Year
  Sex: Female

DRUGS (5)
  1. LYRICA [Suspect]
     Indication: PAIN
     Dosage: 250 MG PER DAY
  2. LYRICA [Suspect]
     Dosage: 75 MG PER DAY
  3. HYPERIUM [Concomitant]
     Indication: HYPERTENSION
  4. AVLOCARDYL [Concomitant]
     Indication: ESSENTIAL TREMOR
  5. GARDENALE [Concomitant]
     Indication: ESSENTIAL TREMOR

REACTIONS (4)
  - ATRIOVENTRICULAR BLOCK [None]
  - BLOOD PRESSURE INCREASED [None]
  - BRADYCARDIA [None]
  - MALAISE [None]
